FAERS Safety Report 6206627-9 (Version None)
Quarter: 2009Q2

REPORT INFORMATION
  Report Type: 
  Country: None (occurrence: None)
  Receive Date: 20090528
  Receipt Date: 20090521
  Transmission Date: 20091009
  Serious: Yes (Other)
  Sender: FDA-Public Use
  Company Number: JP-ASTRAZENECA-2009AP02610

PATIENT
  Age: 65 Year
  Sex: Male
  Weight: 74 kg

DRUGS (3)
  1. CRESTOR [Suspect]
     Indication: HYPERCHOLESTEROLAEMIA
     Route: 048
     Dates: start: 20081215, end: 20090316
  2. UBIDECARENONE [Suspect]
     Dosage: DOSE UNKNOWN
     Route: 048
     Dates: start: 20081101, end: 20090331
  3. CIBENOL [Concomitant]
     Indication: SICK SINUS SYNDROME
     Route: 048
     Dates: start: 20081215, end: 20090316

REACTIONS (1)
  - LIVER DISORDER [None]
